FAERS Safety Report 9747609 (Version 1)
Quarter: 2013Q4

REPORT INFORMATION
  Report Type: Spontaneous
  Country: NL (occurrence: None)
  Receive Date: 20131206
  Receipt Date: 20131206
  Transmission Date: 20140711
  Serious: Yes (Death, Hospitalization)
  Sender: FDA-Public Use
  Company Number: AUR-APL-2013-10017

PATIENT
  Age: 71 Year
  Sex: Female

DRUGS (5)
  1. PANTOPRAZOLE (PANTOPRAZOLE) [Suspect]
     Dosage: UNKNOWN
  2. DICLOFENAC (DICLOFENAC) [Suspect]
  3. SIMVASTATIN (SIMVASTATIN) [Concomitant]
  4. FERROUS FUMARATE (FERROUS FUMARATE) [Concomitant]
  5. DABIGATRAN (DABIGATRAN) (DABIGA TRAN) [Suspect]

REACTIONS (3)
  - Thrombocytopenia [None]
  - Haemorrhagic stroke [None]
  - Cerebral infarction [None]
